FAERS Safety Report 7067330-9 (Version None)
Quarter: 2010Q4

REPORT INFORMATION
  Report Type: 
  Country: None (occurrence: None)
  Receive Date: 20101022
  Receipt Date: 20101022
  Transmission Date: 20110411
  Serious: Yes (Hospitalization)
  Sender: FDA-Public Use
  Company Number: None

PATIENT
  Age: 46 Year
  Sex: Male
  Weight: 94.5 kg

DRUGS (2)
  1. MECLIZINE [Suspect]
     Indication: DIZZINESS
     Dosage: 25 MG TID PO
     Route: 048
     Dates: start: 20080908, end: 20101018
  2. MORPHINE [Suspect]
     Indication: PAIN
     Dosage: 15 MG TID PO
     Route: 048
     Dates: start: 20100712, end: 20101018

REACTIONS (5)
  - DIPLOPIA [None]
  - DIZZINESS [None]
  - DYSARTHRIA [None]
  - SOMNOLENCE [None]
  - VISION BLURRED [None]
